FAERS Safety Report 5430348-3 (Version None)
Quarter: 2007Q3

REPORT INFORMATION
  Report Type: 
  Country: None (occurrence: None)
  Receive Date: 20070828
  Receipt Date: 20070813
  Transmission Date: 20080115
  Serious: Yes (Other)
  Sender: FDA-Public Use
  Company Number: 2007CL001099

PATIENT
  Age: 53 Year
  Sex: Male
  Weight: 88.0885 kg

DRUGS (11)
  1. SYMLIN [Suspect]
     Indication: TYPE 1 DIABETES MELLITUS
     Dosage: 60 MCG;QD;SC, 48 MCG;BID;SC, 15 MCG;TID;SC
     Route: 058
     Dates: start: 20070423, end: 20070608
  2. SYMLIN [Suspect]
     Indication: TYPE 1 DIABETES MELLITUS
     Dosage: 60 MCG;QD;SC, 48 MCG;BID;SC, 15 MCG;TID;SC
     Route: 058
     Dates: start: 20070608
  3. SYMLIN [Suspect]
     Indication: TYPE 1 DIABETES MELLITUS
     Dosage: 60 MCG;QD;SC, 48 MCG;BID;SC, 15 MCG;TID;SC
     Route: 058
     Dates: start: 20070608
  4. NOVOLOG [Suspect]
     Indication: TYPE 1 DIABETES MELLITUS
     Dosage: PRN; SC
     Route: 058
  5. LANTUS [Concomitant]
  6. COZAAR [Concomitant]
  7. LISINOPRIL AND HYDROCHLOROTHIAZIDE [Concomitant]
  8. COREG [Concomitant]
  9. LIPITOR [Concomitant]
  10. TADALAFIL [Concomitant]
  11. ASPIRIN [Concomitant]

REACTIONS (2)
  - HYPOGLYCAEMIA [None]
  - ROAD TRAFFIC ACCIDENT [None]
